FAERS Safety Report 15159896 (Version 1)
Quarter: 2018Q3

REPORT INFORMATION
  Report Type: Spontaneous
  Country: JP (occurrence: JP)
  Receive Date: 20180718
  Receipt Date: 20180718
  Transmission Date: 20181010
  Serious: Yes (Hospitalization)
  Sender: FDA-Public Use
  Company Number: JP-GILEAD-2018-0349788

PATIENT
  Age: 55 Year
  Sex: Male

DRUGS (3)
  1. VEMLIDY [Suspect]
     Active Substance: TENOFOVIR ALAFENAMIDE FUMARATE
     Indication: CHRONIC HEPATITIS B
     Dosage: 25MG, UNK
     Route: 048
     Dates: start: 201803, end: 20180530
  2. BARACLUDE [Concomitant]
     Active Substance: ENTECAVIR
     Indication: CHRONIC HEPATITIS B
     Dosage: UNK
     Dates: end: 201803
  3. BARACLUDE [Concomitant]
     Active Substance: ENTECAVIR
     Dosage: UNK
     Route: 065
     Dates: start: 2018

REACTIONS (3)
  - Hypoalbuminaemia [Recovered/Resolved]
  - Diarrhoea [Recovered/Resolved]
  - Pyrexia [Recovered/Resolved]

NARRATIVE: CASE EVENT DATE: 201803
